FAERS Safety Report 25894926 (Version 1)
Quarter: 2025Q4

REPORT INFORMATION
  Report Type: Spontaneous
  Country: US (occurrence: None)
  Receive Date: 20251007
  Receipt Date: 20251007
  Transmission Date: 20260117
  Serious: Yes (Other)
  Sender: FDA-CTU
  Company Number: None

PATIENT
  Age: 80 Year
  Sex: Male

DRUGS (2)
  1. CARBOPLATIN [Suspect]
     Active Substance: CARBOPLATIN
     Dosage: 295MG Q3W
  2. FOSAPREPITANT [Suspect]
     Active Substance: FOSAPREPITANT
     Dosage: 150MG

REACTIONS (1)
  - Hospice care [None]
